FAERS Safety Report 13201149 (Version 4)
Quarter: 2017Q3

REPORT INFORMATION
  Report Type: Spontaneous
  Country: US (occurrence: US)
  Receive Date: 20170209
  Receipt Date: 20170731
  Transmission Date: 20171127
  Serious: No
  Sender: FDA-Public Use
  Company Number: PHEH2017US004094

PATIENT
  Sex: Female
  Weight: 79.37 kg

DRUGS (4)
  1. ONDANSETRONE DR. REDDY^S [Suspect]
     Active Substance: ONDANSETRON HYDROCHLORIDE
     Indication: VOMITING IN PREGNANCY
     Dosage: 04 MG, TID
     Route: 065
     Dates: start: 20090608, end: 200906
  2. ONDANSETRONE DR. REDDY^S [Suspect]
     Active Substance: ONDANSETRON HYDROCHLORIDE
     Dosage: 08 MG, QD
     Route: 065
     Dates: start: 20090702, end: 200912
  3. ZOFRAN [Suspect]
     Active Substance: ONDANSETRON HYDROCHLORIDE
     Indication: PRODUCT USED FOR UNKNOWN INDICATION
     Route: 042
  4. ZOFRAN [Suspect]
     Active Substance: ONDANSETRON HYDROCHLORIDE
     Indication: PRODUCT USED FOR UNKNOWN INDICATION
     Route: 048

REACTIONS (20)
  - Obesity [Unknown]
  - Upper respiratory tract infection [Unknown]
  - Viral infection [Unknown]
  - Abdominal pain [Unknown]
  - Ear disorder [Unknown]
  - Gastritis [Unknown]
  - Cough [Unknown]
  - Injury [Unknown]
  - Abdominal pain upper [Unknown]
  - Otitis externa [Unknown]
  - Acute sinusitis [Unknown]
  - Chest pain [Unknown]
  - Maternal exposure during pregnancy [Unknown]
  - Product use issue [Unknown]
  - Muscle spasms [Unknown]
  - Ear congestion [Unknown]
  - Emotional distress [Unknown]
  - Vaginal infection [Unknown]
  - Duodenitis [Unknown]
  - Ear infection [Unknown]
